APPROVED DRUG PRODUCT: FYCOMPA
Active Ingredient: PERAMPANEL
Strength: 0.5MG/ML
Dosage Form/Route: SUSPENSION;ORAL
Application: N208277 | Product #001 | TE Code: AB
Applicant: CATALYST PHARMACEUTICALS INC
Approved: Apr 29, 2016 | RLD: Yes | RS: Yes | Type: RX

PATENTS:
Patent 8772497 | Expires: Jul 1, 2026